FAERS Safety Report 18441052 (Version 1)
Quarter: 2020Q4

REPORT INFORMATION
  Report Type: Spontaneous
  Country: TR (occurrence: TR)
  Receive Date: 20201029
  Receipt Date: 20201029
  Transmission Date: 20210114
  Serious: Yes (Life-Threatening, Hospitalization, Other)
  Sender: FDA-Public Use
  Company Number: TR-STRIDES ARCOLAB LIMITED-2020SP012885

PATIENT
  Age: 14 Year
  Sex: Female

DRUGS (1)
  1. IBUPROFEN. [Suspect]
     Active Substance: IBUPROFEN
     Indication: PRODUCT USED FOR UNKNOWN INDICATION
     Dosage: 1 DOSAGE FORM, EVERY 12 HRS (TABLET)
     Route: 065

REACTIONS (17)
  - Rash macular [Recovered/Resolved]
  - Skin exfoliation [Recovered/Resolved]
  - Scab [Recovered/Resolved]
  - Conjunctival oedema [Recovered/Resolved]
  - Rash [Recovered/Resolved]
  - Salivary hypersecretion [Recovered/Resolved]
  - Keratopathy [Recovered/Resolved]
  - Sepsis [Recovered/Resolved]
  - Stevens-Johnson syndrome [Recovered/Resolved]
  - Erythema [Recovered/Resolved]
  - Necrosis [Recovered/Resolved]
  - Skin ulcer [Recovered/Resolved]
  - Oral mucosa erosion [Recovered/Resolved]
  - Anorectal disorder [Recovered/Resolved]
  - Dermatitis bullous [Recovered/Resolved]
  - Dysphagia [Recovered/Resolved]
  - Genital lesion [Recovered/Resolved]
